FAERS Safety Report 7919304-0 (Version None)
Quarter: 2011Q4

REPORT INFORMATION
  Report Type: 
  Country: None (occurrence: None)
  Receive Date: 20111115
  Receipt Date: 20111115
  Transmission Date: 20120403
  Serious: Yes (Death)
  Sender: FDA-Public Use
  Company Number: None

PATIENT
  Age: 66 Year
  Sex: Female

DRUGS (1)
  1. KEFLEX [Suspect]

REACTIONS (5)
  - UNRESPONSIVE TO STIMULI [None]
  - LIP SWELLING [None]
  - SWOLLEN TONGUE [None]
  - UNEVALUABLE EVENT [None]
  - ANOXIA [None]
